FAERS Safety Report 9294225 (Version 1)
Quarter: 2013Q2

REPORT INFORMATION
  Report Type: Spontaneous
  Country: US (occurrence: None)
  Receive Date: 20130516
  Receipt Date: 20130516
  Transmission Date: 20140414
  Serious: Yes (Other)
  Sender: FDA-Public Use
  Company Number: None

PATIENT
  Age: 51 Year
  Sex: Female
  Weight: 67.13 kg

DRUGS (1)
  1. VIORELE [Suspect]
     Indication: CONTRACEPTION
     Dosage: DESOGESTREL/
     Route: 048
     Dates: start: 20130505, end: 20130510

REACTIONS (6)
  - Mood altered [None]
  - Mental disorder [None]
  - Crying [None]
  - Crying [None]
  - Tremor [None]
  - Product substitution issue [None]
